FAERS Safety Report 8356207-4 (Version None)
Quarter: 2012Q2

REPORT INFORMATION
  Report Type: 
  Country: None (occurrence: None)
  Receive Date: 20120510
  Receipt Date: 20120430
  Transmission Date: 20120825
  Serious: Yes (Hospitalization, Other)
  Sender: FDA-Public Use
  Company Number: UTC-017918

PATIENT
  Age: 47 Year
  Sex: Female
  Weight: 86.36 kg

DRUGS (6)
  1. REVATIO [Concomitant]
  2. REMODULIN [Suspect]
     Indication: COR PULMONALE CHRONIC
     Dosage: 21.6 UG/KG (0.015 UG/KG, 1 IN 1 MIN), INTRAVENOUS
     Route: 042
     Dates: start: 20120103
  3. REMODULIN [Suspect]
     Indication: PULMONARY HYPERTENSION
     Dosage: 21.6 UG/KG (0.015 UG/KG, 1 IN 1 MIN), INTRAVENOUS
     Route: 042
     Dates: start: 20120103
  4. LETAIRIS [Suspect]
     Indication: PRODUCT USED FOR UNKNOWN INDICATION
     Dosage: 10 MG, ORAL
     Route: 048
     Dates: start: 20090729
  5. COUMADIN [Concomitant]
  6. DIURETICS (DIURETICS) [Concomitant]

REACTIONS (8)
  - PAIN IN JAW [None]
  - PAIN IN EXTREMITY [None]
  - INADEQUATE ANALGESIA [None]
  - FLUID RETENTION [None]
  - OEDEMA PERIPHERAL [None]
  - SWELLING [None]
  - HEADACHE [None]
  - FLUSHING [None]
